FAERS Safety Report 14775848 (Version 3)
Quarter: 2018Q2

REPORT INFORMATION
  Report Type: Spontaneous
  Country: NL (occurrence: NL)
  Receive Date: 20180418
  Receipt Date: 20180504
  Transmission Date: 20180711
  Serious: Yes (Other)
  Sender: FDA-Public Use
  Company Number: NL-JNJFOC-20180417528

PATIENT
  Age: 5 Year
  Sex: Male

DRUGS (3)
  1. PHENYTOIN. [Concomitant]
     Active Substance: PHENYTOIN
     Indication: STATUS EPILEPTICUS
     Dosage: INTRAVENOUS ADMINISTRATION AT THE EMERGENCY DEPARTMENT
     Route: 042
  2. TOPIRAMATE. [Suspect]
     Active Substance: TOPIRAMATE
     Indication: STATUS EPILEPTICUS
     Dosage: MAINTENANCE THERAPY, LOW DOSE ONLY FOR A FEW WEEKS
     Route: 048
     Dates: start: 201505
  3. PHENYTOIN. [Concomitant]
     Active Substance: PHENYTOIN
     Indication: STATUS EPILEPTICUS
     Dosage: ADMINISTRATION OF ORAL PHENYTOIN AT HOME
     Route: 048

REACTIONS (4)
  - Ataxia [Recovered/Resolved]
  - Dysarthria [Recovered/Resolved]
  - Encephalopathy [Recovered/Resolved]
  - Status epilepticus [Recovered/Resolved]

NARRATIVE: CASE EVENT DATE: 2015
